FAERS Safety Report 23728535 (Version 4)
Quarter: 2024Q2

REPORT INFORMATION
  Report Type: Spontaneous
  Country: FR (occurrence: FR)
  Receive Date: 20240410
  Receipt Date: 20240516
  Transmission Date: 20240715
  Serious: Yes (Other)
  Sender: FDA-Public Use
  Company Number: FR-MLMSERVICE-20240319-4893834-1

PATIENT

DRUGS (2)
  1. SOMATROPIN [Suspect]
     Active Substance: SOMATROPIN
     Indication: Growth hormone deficiency
     Dosage: 0.015 MG/KG, DAILY
     Route: 065
  2. LEVOTHYROXINE [Concomitant]
     Active Substance: LEVOTHYROXINE\LEVOTHYROXINE SODIUM
     Indication: Central hypothyroidism
     Dosage: 2 UG/KG, DAILY (2 ?G/KG/DAY)

REACTIONS (3)
  - Intracranial pressure increased [Unknown]
  - Sleep disorder [Recovered/Resolved]
  - Middle insomnia [Recovered/Resolved]
